FAERS Safety Report 8299134-3 (Version None)
Quarter: 2012Q2

REPORT INFORMATION
  Report Type: 
  Country: None (occurrence: None)
  Receive Date: 20120419
  Receipt Date: 20120410
  Transmission Date: 20120825
  Serious: Yes (Hospitalization, Other)
  Sender: FDA-Public Use
  Company Number: US-ROCHE-793986

PATIENT
  Sex: Female
  Weight: 62.652 kg

DRUGS (2)
  1. ACCUTANE [Suspect]
  2. ACCUTANE [Suspect]
     Indication: ACNE

REACTIONS (8)
  - COLITIS [None]
  - IRRITABLE BOWEL SYNDROME [None]
  - DEPRESSION [None]
  - ANAEMIA [None]
  - SMALL INTESTINAL OBSTRUCTION [None]
  - INFLAMMATORY BOWEL DISEASE [None]
  - ILEAL STENOSIS [None]
  - CROHN'S DISEASE [None]
